FAERS Safety Report 16900797 (Version 3)
Quarter: 2019Q4

REPORT INFORMATION
  Report Type: Spontaneous
  Country: US (occurrence: US)
  Receive Date: 20191009
  Receipt Date: 20191119
  Transmission Date: 20200122
  Serious: Yes (Hospitalization, Other)
  Sender: FDA-Public Use
  Company Number: US-AKORN PHARMACEUTICALS-2019AKN02111

PATIENT
  Sex: Male
  Weight: 47.62 kg

DRUGS (2)
  1. MYORISAN [Suspect]
     Active Substance: ISOTRETINOIN
     Indication: ACNE
     Dosage: 30 MG, 2X/DAY
     Route: 048
     Dates: start: 20190628, end: 20190825
  2. MYORISAN [Suspect]
     Active Substance: ISOTRETINOIN
     Indication: ACNE
     Dosage: 40 MG, 2X/DAY
     Route: 048
     Dates: start: 20190826, end: 20190911

REACTIONS (6)
  - Depression [Recovering/Resolving]
  - Cheilitis [Unknown]
  - Therapeutic response unexpected [Unknown]
  - Myalgia [Unknown]
  - Mood altered [Recovering/Resolving]
  - Suicide attempt [Recovered/Resolved]

NARRATIVE: CASE EVENT DATE: 2019
